FAERS Safety Report 24562913 (Version 3)
Quarter: 2025Q1

REPORT INFORMATION
  Report Type: Report from Study
  Country: US (occurrence: US)
  Receive Date: 20241030
  Receipt Date: 20250312
  Transmission Date: 20250408
  Serious: Yes (Hospitalization, Other)
  Sender: ABBVIE
  Company Number: US-ABBVIE-5878213

PATIENT
  Age: 54 Year
  Sex: Female
  Weight: 67 kg

DRUGS (6)
  1. SKYRIZI [Suspect]
     Active Substance: RISANKIZUMAB-RZAA
     Indication: Crohn^s disease
     Route: 058
     Dates: start: 202404, end: 202404
  2. SKYRIZI [Suspect]
     Active Substance: RISANKIZUMAB-RZAA
     Route: 058
     Dates: start: 202409, end: 202409
  3. SKYRIZI [Suspect]
     Active Substance: RISANKIZUMAB-RZAA
     Indication: Crohn^s disease
     Route: 042
     Dates: start: 202401, end: 202403
  4. SKYRIZI [Suspect]
     Active Substance: RISANKIZUMAB-RZAA
     Indication: Crohn^s disease
     Route: 042
     Dates: start: 202406, end: 202408
  5. SKYRIZI [Suspect]
     Active Substance: RISANKIZUMAB-RZAA
     Indication: Crohn^s disease
     Dosage: DOSAGE: 28 MG/ML
     Route: 042
     Dates: start: 20231001
  6. TRAZODONE [Concomitant]
     Active Substance: TRAZODONE HYDROCHLORIDE
     Indication: Product used for unknown indication

REACTIONS (20)
  - Non-Hodgkin^s lymphoma [Not Recovered/Not Resolved]
  - Pharyngitis [Recovered/Resolved]
  - Crohn^s disease [Recovered/Resolved]
  - Gastrointestinal pain [Unknown]
  - Influenza [Recovered/Resolved]
  - Crohn^s disease [Unknown]
  - General physical health deterioration [Not Recovered/Not Resolved]
  - Red blood cell count decreased [Not Recovered/Not Resolved]
  - Gastrointestinal haemorrhage [Not Recovered/Not Resolved]
  - Condition aggravated [Unknown]
  - Pouchitis [Recovering/Resolving]
  - Feeding disorder [Not Recovered/Not Resolved]
  - Intestinal mass [Not Recovered/Not Resolved]
  - Enteritis [Recovering/Resolving]
  - Gastritis [Unknown]
  - Clostridium difficile infection [Recovered/Resolved]
  - Malaise [Not Recovered/Not Resolved]
  - Colitis [Not Recovered/Not Resolved]
  - Emotional disorder [Unknown]
  - Non-Hodgkin^s lymphoma metastatic [Recovering/Resolving]

NARRATIVE: CASE EVENT DATE: 20240101
